FAERS Safety Report 5926554-1 (Version None)
Quarter: 2008Q4

REPORT INFORMATION
  Report Type: 
  Country: None (occurrence: None)
  Receive Date: 20081022
  Receipt Date: 20081021
  Transmission Date: 20090506
  Serious: Yes (Hospitalization)
  Sender: FDA-Public Use
  Company Number: US-BRISTOL-MYERS SQUIBB COMPANY-14377154

PATIENT
  Age: 39 Year
  Sex: Female
  Weight: 97 kg

DRUGS (8)
  1. DASATINIB [Suspect]
     Indication: BREAST CANCER METASTATIC
     Route: 048
     Dates: start: 20080903, end: 20080905
  2. GLYCOLAX [Suspect]
     Indication: CONSTIPATION
  3. WELLBUTRIN [Concomitant]
     Route: 048
  4. AMBIEN [Concomitant]
     Route: 048
  5. MULTI-VITAMIN [Concomitant]
     Dosage: 1 DOSAGE FORM = 1(UNIT NOT SPECIFIED).
     Route: 048
  6. OXYCODONE HCL EXTENDED-RELEASE [Concomitant]
  7. OXYCODONE HCL [Concomitant]
     Dosage: 1 DOSAGE FORM = 5/500,BID
  8. ALEVE [Concomitant]
     Dosage: 1 DOSAGE FORM = 1TAB DAILY

REACTIONS (2)
  - DEHYDRATION [None]
  - INTESTINAL OBSTRUCTION [None]
